FAERS Safety Report 6920316-4 (Version None)
Quarter: 2010Q3

REPORT INFORMATION
  Report Type: 
  Country: None (occurrence: None)
  Receive Date: 20100809
  Receipt Date: 20100730
  Transmission Date: 20110219
  Serious: Yes (Disabling)
  Sender: FDA-Public Use
  Company Number: DSA_43629_2010

PATIENT
  Sex: Male

DRUGS (9)
  1. XENAZINE [Suspect]
     Indication: ANOREXIA NERVOSA
     Dosage: 12.5 MG QD, 12.5 MG BID, 12.5 MG TID
     Dates: start: 20100101, end: 20100101
  2. XENAZINE [Suspect]
     Indication: TOURETTE'S DISORDER
     Dosage: 12.5 MG QD, 12.5 MG BID, 12.5 MG TID
     Dates: start: 20100101, end: 20100101
  3. XENAZINE [Suspect]
     Indication: ANOREXIA NERVOSA
     Dosage: 12.5 MG QD, 12.5 MG BID, 12.5 MG TID
     Dates: start: 20100501, end: 20100501
  4. XENAZINE [Suspect]
     Indication: TOURETTE'S DISORDER
     Dosage: 12.5 MG QD, 12.5 MG BID, 12.5 MG TID
     Dates: start: 20100501, end: 20100501
  5. XENAZINE [Suspect]
     Indication: ANOREXIA NERVOSA
     Dosage: 12.5 MG QD, 12.5 MG BID, 12.5 MG TID
     Dates: start: 20100501, end: 20100722
  6. XENAZINE [Suspect]
     Indication: TOURETTE'S DISORDER
     Dosage: 12.5 MG QD, 12.5 MG BID, 12.5 MG TID
     Dates: start: 20100501, end: 20100722
  7. ENALAPRIL MALEATE [Concomitant]
  8. TRICOR [Concomitant]
  9. ACTOPLUS MET [Concomitant]

REACTIONS (7)
  - ACTIVITIES OF DAILY LIVING IMPAIRED [None]
  - BRUXISM [None]
  - COUGH [None]
  - DEPRESSION [None]
  - DIZZINESS [None]
  - DRUG INEFFECTIVE [None]
  - HYPERHIDROSIS [None]
